FAERS Safety Report 15690832 (Version 4)
Quarter: 2019Q3

REPORT INFORMATION
  Report Type: Spontaneous
  Country: US (occurrence: US)
  Receive Date: 20181205
  Receipt Date: 20190812
  Transmission Date: 20191004
  Serious: No
  Sender: FDA-Public Use
  Company Number: US-SA-2018SA325672

PATIENT
  Age: 60 Year
  Sex: Female

DRUGS (3)
  1. APIDRA SOLOSTAR [Suspect]
     Active Substance: INSULIN GLULISINE
     Indication: TYPE 2 DIABETES MELLITUS
     Dosage: 4U AM, 3U NOON, 3U D
     Route: 065
  2. APIDRA SOLOSTAR [Suspect]
     Active Substance: INSULIN GLULISINE
     Dosage: OR 5 UNITS AT BREAKFAST, 3 OR 4 UNITS AT LUNCH AND 3 UNITS AT DINNER
     Route: 065
  3. APIDRA SOLOSTAR [Suspect]
     Active Substance: INSULIN GLULISINE
     Dosage: 4-5 UNITS AT BREAKFAST, 3-4 UNITS AT LUNCH AND 3 UNITS WITH HER EVENING MEAL
     Route: 065

REACTIONS (5)
  - Injection site bruising [Unknown]
  - Inappropriate schedule of product administration [Unknown]
  - Product contamination with body fluid [Unknown]
  - Product quality issue [Unknown]
  - Blood glucose increased [Unknown]
